FAERS Safety Report 6342068-1 (Version None)
Quarter: 2009Q3

REPORT INFORMATION
  Report Type: 
  Country: None (occurrence: None)
  Receive Date: 20090903
  Receipt Date: 20090825
  Transmission Date: 20100115
  Serious: Yes (Other)
  Sender: FDA-Public Use
  Company Number: AUR-APL-2009-00502

PATIENT
  Age: 82 Year
  Sex: Female

DRUGS (3)
  1. SERTRALINE HCL [Suspect]
     Dosage: ORAL
     Route: 048
     Dates: start: 20090714
  2. ADCAL-D3 [Concomitant]
  3. ALENDRONIC ACID [Concomitant]

REACTIONS (2)
  - DIARRHOEA [None]
  - NAUSEA [None]
